FAERS Safety Report 6989048-0 (Version None)
Quarter: 2010Q3

REPORT INFORMATION
  Report Type: 
  Country: None (occurrence: None)
  Receive Date: 20100916
  Receipt Date: 20090923
  Transmission Date: 20110219
  Serious: Yes (Life-Threatening, Hospitalization, Other)
  Sender: FDA-Public Use
  Company Number: CA-PFIZER INC-2009247532

PATIENT
  Sex: Male
  Weight: 68.934 kg

DRUGS (4)
  1. LYRICA [Suspect]
     Indication: NEURALGIA
     Dosage: 150 MG, 1X/DAY
     Route: 048
     Dates: start: 20090606, end: 20090710
  2. GABAPENTIN [Suspect]
     Dosage: UNK
  3. TYLENOL W/ CODEINE NO. 3 [Concomitant]
     Dosage: UNK
     Dates: start: 20080201
  4. MELOXICAM [Concomitant]
     Dosage: UNK
     Dates: start: 20080201

REACTIONS (5)
  - AGRANULOCYTOSIS [None]
  - CELLULITIS [None]
  - DIARRHOEA [None]
  - NEUTROPENIA [None]
  - STOMATITIS [None]
